FAERS Safety Report 6473273-1 (Version None)
Quarter: 2009Q4

REPORT INFORMATION
  Report Type: 
  Country: None (occurrence: None)
  Receive Date: 20091204
  Receipt Date: 20080507
  Transmission Date: 20100525
  Serious: Yes (Other)
  Sender: FDA-Public Use
  Company Number: GB-ELI_LILLY_AND_COMPANY-GB200805003171

PATIENT
  Age: 39 Year
  Sex: Female
  Weight: 52 kg

DRUGS (7)
  1. ZYPREXA [Suspect]
     Dosage: 20 MG, EACH EVENING
     Route: 065
  2. CAMCOLIT [Concomitant]
     Dosage: 1.7 G, DAILY (1/D)
     Route: 065
  3. CAMCOLIT [Concomitant]
     Dosage: UNK, UNKNOWN
     Route: 065
  4. CLONAZEPAM [Concomitant]
     Dosage: 0.5 MG, EACH EVENING
     Route: 065
  5. CLONAZEPAM [Concomitant]
     Dosage: 0.5 MG, UNKNOWN AS TREATMENT
     Route: 048
  6. FOLIC ACID [Concomitant]
     Dosage: 500 UG, DAILY (1/D)
     Route: 065
  7. LACTULOSE [Concomitant]
     Dosage: UNK, UNKNOWN
     Route: 065

REACTIONS (9)
  - AGITATION [None]
  - CONFUSIONAL STATE [None]
  - DELAYED RECOVERY FROM ANAESTHESIA [None]
  - DISORIENTATION [None]
  - DRUG EXPOSURE DURING PREGNANCY [None]
  - OBSTRUCTIVE UROPATHY [None]
  - RENAL IMPAIRMENT [None]
  - RESTLESSNESS [None]
  - THERAPEUTIC AGENT TOXICITY [None]
